FAERS Safety Report 10237188 (Version 1)
Quarter: 2014Q2

REPORT INFORMATION
  Report Type: Spontaneous
  Country: GB (occurrence: GB)
  Receive Date: 20140613
  Receipt Date: 20140613
  Transmission Date: 20141212
  Serious: Yes (Other)
  Sender: FDA-Public Use
  Company Number: GB-LUNDBECK-DKLU1100973

PATIENT
  Age: 15 Year
  Sex: Female

DRUGS (2)
  1. CLOBAZAM [Suspect]
     Indication: EPILEPSY
     Route: 048
     Dates: start: 201305
  2. LAMOTRIGINE [Suspect]
     Indication: EPILEPSY
     Route: 048

REACTIONS (2)
  - Drug interaction [Unknown]
  - Convulsion [Unknown]
